FAERS Safety Report 20598298 (Version 2)
Quarter: 2022Q2

REPORT INFORMATION
  Report Type: Spontaneous
  Country: US (occurrence: US)
  Receive Date: 20220315
  Receipt Date: 20220411
  Transmission Date: 20220720
  Serious: Yes (Other)
  Sender: FDA-Public Use
  Company Number: US-PFIZER INC-202200364080

PATIENT
  Age: 56 Year
  Sex: Female

DRUGS (2)
  1. XELJANZ XR [Suspect]
     Active Substance: TOFACITINIB CITRATE
     Indication: Rheumatoid arthritis
     Dosage: 11 MG, 1X/DAY
     Route: 048
     Dates: start: 202107
  2. XELJANZ XR [Suspect]
     Active Substance: TOFACITINIB CITRATE
     Dosage: 11 MG, 1X/DAY
     Route: 048
     Dates: start: 202109

REACTIONS (7)
  - COVID-19 [Unknown]
  - Pneumonia [Unknown]
  - Pain [Unknown]
  - Osteoporosis [Unknown]
  - Inflammation [Not Recovered/Not Resolved]
  - Therapeutic product ineffective [Unknown]
  - Memory impairment [Unknown]

NARRATIVE: CASE EVENT DATE: 20210801
